FAERS Safety Report 16104938 (Version 1)
Quarter: 2019Q1

REPORT INFORMATION
  Report Type: Spontaneous
  Country: IT (occurrence: IT)
  Receive Date: 20190322
  Receipt Date: 20190322
  Transmission Date: 20190418
  Serious: Yes (Hospitalization)
  Sender: FDA-Public Use
  Company Number: IT-VERTEX PHARMACEUTICALS-2019-002290

PATIENT
  Age: 33 Year
  Sex: Female

DRUGS (9)
  1. PULMOZYME [Concomitant]
     Active Substance: DORNASE ALFA
     Route: 055
  2. DICOFLOR                           /03562201/ [Concomitant]
  3. ORKAMBI [Suspect]
     Active Substance: IVACAFTOR\LUMACAFTOR
     Indication: CYSTIC FIBROSIS
     Dosage: 2 DOSAGE FORM, QD
     Route: 048
     Dates: start: 20180220
  4. ZITROMAX [Concomitant]
     Active Substance: AZITHROMYCIN
     Route: 048
  5. CREON [Concomitant]
     Active Substance: PANCRELIPASE AMYLASE\PANCRELIPASE LIPASE\PANCRELIPASE PROTEASE
     Route: 048
  6. COLOBREATHE [Concomitant]
     Active Substance: COLISTIMETHATE SODIUM
     Route: 055
  7. SYMBICORT [Concomitant]
     Active Substance: BUDESONIDE\FORMOTEROL FUMARATE DIHYDRATE
     Route: 055
  8. OMEPRAZOLO SANDOZ [Concomitant]
     Route: 048
  9. DEURSIL [Concomitant]
     Active Substance: URSODIOL
     Route: 048

REACTIONS (2)
  - Sense of oppression [Recovering/Resolving]
  - Dyspnoea [Recovering/Resolving]

NARRATIVE: CASE EVENT DATE: 20180901
